FAERS Safety Report 18443045 (Version 2)
Quarter: 2020Q4

REPORT INFORMATION
  Report Type: Spontaneous
  Country: US (occurrence: US)
  Receive Date: 20201029
  Receipt Date: 20201112
  Transmission Date: 20210114
  Serious: Yes (Hospitalization)
  Sender: FDA-Public Use
  Company Number: US-TEVA-2020-US-1842219

PATIENT
  Age: 60 Year
  Sex: Female

DRUGS (1)
  1. ENOXAPARIN SODIUM. [Suspect]
     Active Substance: ENOXAPARIN SODIUM
     Indication: DEEP VEIN THROMBOSIS
     Dosage: 100 MILLIGRAM DAILY;
     Route: 065

REACTIONS (4)
  - Anaemia [Recovered/Resolved]
  - Hypotension [Recovered/Resolved]
  - Swelling [Unknown]
  - Breast haematoma [Recovered/Resolved]
